FAERS Safety Report 18682278 (Version 6)
Quarter: 2021Q1

REPORT INFORMATION
  Report Type: Spontaneous
  Country: US (occurrence: US)
  Receive Date: 20201230
  Receipt Date: 20210324
  Transmission Date: 20210419
  Serious: Yes (Other)
  Sender: FDA-Public Use
  Company Number: US-JNJFOC-20201246825

PATIENT
  Age: 56 Year
  Sex: Male
  Weight: 136.2 kg

DRUGS (13)
  1. INVEGA SUSTENNA [Suspect]
     Active Substance: PALIPERIDONE PALMITATE
  2. ATIVAN [Concomitant]
     Active Substance: LORAZEPAM
     Indication: ANXIETY
  3. CRESTOR [Concomitant]
     Active Substance: ROSUVASTATIN CALCIUM
  4. ERYTHROMYCIN. [Concomitant]
     Active Substance: ERYTHROMYCIN
     Route: 065
  5. SEDUXEN [Concomitant]
     Indication: PANIC DISORDER
  6. SEROQUEL [Concomitant]
     Active Substance: QUETIAPINE FUMARATE
  7. INVEGA SUSTENNA [Suspect]
     Active Substance: PALIPERIDONE PALMITATE
  8. DEPAKOTE [Concomitant]
     Active Substance: DIVALPROEX SODIUM
     Indication: DEPRESSION
  9. ZYPREXA [Concomitant]
     Active Substance: OLANZAPINE
  10. PENICILLIN G [BENZYLPENICILLIN] [Concomitant]
     Active Substance: PENICILLIN G
     Route: 065
  11. VERAPAMIL [Concomitant]
     Active Substance: VERAPAMIL HYDROCHLORIDE
  12. RAMIPRIL. [Concomitant]
     Active Substance: RAMIPRIL
  13. INVEGA SUSTENNA [Suspect]
     Active Substance: PALIPERIDONE PALMITATE
     Indication: SCHIZOPHRENIA
     Route: 030

REACTIONS (21)
  - Memory impairment [Unknown]
  - Fasciitis [Unknown]
  - Homosexuality [Unknown]
  - Unevaluable event [Unknown]
  - Tuberculosis [Unknown]
  - Sleep apnoea syndrome [Unknown]
  - Nervousness [Unknown]
  - Agitation [Unknown]
  - Paranoia [Unknown]
  - Necrosis [Unknown]
  - Neoplasm malignant [Unknown]
  - Alcohol abuse [Unknown]
  - Nausea [Unknown]
  - Sleep disorder [Unknown]
  - Claustrophobia [Unknown]
  - Psychotic disorder [Unknown]
  - Erectile dysfunction [Unknown]
  - Product dose omission issue [Unknown]
  - Food poisoning [Unknown]
  - Insomnia [Unknown]
  - Aggression [Unknown]
